FAERS Safety Report 8466819 (Version 3)
Quarter: 2013Q2

REPORT INFORMATION
  Report Type: Spontaneous
  Country: US (occurrence: US)
  Receive Date: 20120320
  Receipt Date: 20130411
  Transmission Date: 20140414
  Serious: Yes (Hospitalization)
  Sender: FDA-Public Use
  Company Number: US-BAYER-2012-023912

PATIENT
  Age: 44 Year
  Sex: Female
  Weight: 72.56 kg

DRUGS (5)
  1. YASMIN [Suspect]
     Indication: CONTRACEPTION
     Dosage: UNK
     Dates: start: 20020707, end: 20091121
  2. OCELLA [Suspect]
     Indication: CONTRACEPTION
     Dosage: UNK
     Dates: start: 20020707, end: 20091121
  3. TYLENOL [PARACETAMOL] [Concomitant]
     Indication: HEADACHE
     Dosage: 2-4 EVERY 4 - 6 HOURS
     Dates: start: 20091113
  4. LORAZEPAM [Concomitant]
     Dosage: 1 MG, TABLET
     Dates: start: 20091014
  5. TRAZODONE [Concomitant]
     Dosage: 50 MG, TABLET
     Dates: start: 20091028

REACTIONS (8)
  - Pulmonary embolism [None]
  - Deep vein thrombosis [None]
  - Pain [None]
  - Injury [None]
  - General physical health deterioration [None]
  - Anxiety [None]
  - Pain [None]
  - Emotional distress [None]
